FAERS Safety Report 12352215 (Version 1)
Quarter: 2016Q2

REPORT INFORMATION
  Report Type: Report from Study
  Country: US (occurrence: US)
  Receive Date: 20160510
  Receipt Date: 20160510
  Transmission Date: 20160815
  Serious: Yes (Hospitalization)
  Sender: FDA-Public Use
  Company Number: PHHO2016US006613

PATIENT
  Sex: Female
  Weight: 75.5 kg

DRUGS (1)
  1. ARZERRA [Suspect]
     Active Substance: OFATUMUMAB
     Indication: LYMPHOMA
     Dosage: 300 MG
     Route: 042
     Dates: start: 20151215, end: 20151215

REACTIONS (1)
  - Clostridium difficile sepsis [Recovering/Resolving]

NARRATIVE: CASE EVENT DATE: 20151228
